FAERS Safety Report 5065607-X (Version None)
Quarter: 2006Q3

REPORT INFORMATION
  Report Type: 
  Country: None (occurrence: None)
  Receive Date: 20060725
  Receipt Date: 20060706
  Transmission Date: 20061208
  Serious: Yes (Other)
  Sender: FDA-Public Use
  Company Number: US200607001803

PATIENT
  Age: 46 Year
  Sex: Female

DRUGS (9)
  1. HUMATROPE [Suspect]
     Indication: HYPOPITUITARISM
     Dates: start: 20030101
  2. HUMATROPEN (HUMATROPEN) [Concomitant]
  3. CORTISOL [Concomitant]
  4. TOPAMAX/AUS/(TOPIRAMATE) [Concomitant]
  5. THYROID HORMONES [Concomitant]
  6. KLONOPIN [Concomitant]
  7. CREON ^DUPHAR^ (PANCREATIN) [Concomitant]
  8. PREMARIN [Concomitant]
  9. PROTONIX [Concomitant]

REACTIONS (9)
  - BLOOD IRON DECREASED [None]
  - CONVULSION [None]
  - CYSTITIS [None]
  - FEELING ABNORMAL [None]
  - MEMORY IMPAIRMENT [None]
  - PHARMACEUTICAL PRODUCT COMPLAINT [None]
  - STAPHYLOCOCCAL INFECTION [None]
  - STRESS [None]
  - THEFT [None]
